FAERS Safety Report 16414737 (Version 1)
Quarter: 2019Q2

REPORT INFORMATION
  Report Type: Spontaneous
  Country: GB (occurrence: GB)
  Receive Date: 20190611
  Receipt Date: 20190611
  Transmission Date: 20190711
  Serious: Yes (Other)
  Sender: FDA-Public Use
  Company Number: GB-TEVA-2019-GB-1059990

PATIENT
  Age: 74 Year
  Sex: Male
  Weight: 89 kg

DRUGS (14)
  1. MARIOSEA XL PROLONGED RELEASE [Suspect]
     Active Substance: TOLTERODINE TARTRATE
     Dosage: 4 MILLIGRAM FOR EVERY 1 DAYS
     Dates: start: 20181016
  2. FENOFIBRATE. [Concomitant]
     Active Substance: FENOFIBRATE
     Dosage: 2 DOSAGE FORM FOR EVERY1 DAYS
     Dates: start: 20190211, end: 20190502
  3. FLUTICASONE PROPIONATE. [Concomitant]
     Active Substance: FLUTICASONE PROPIONATE
     Dosage: PUFFS
     Dates: start: 20180908
  4. ACETYLSALICYLIC ACID [Concomitant]
     Active Substance: ASPIRIN
     Dosage: 1 DOSAGE FORM FOR EVERY 1 DAYS
     Dates: start: 20180908
  5. VENTOLIN [Concomitant]
     Active Substance: ALBUTEROL SULFATE
     Dosage: 2 DOSAGE FORM 2 PUFFS 4 HOURLY
     Dates: start: 20180908
  6. COCODAMOL [Concomitant]
     Active Substance: ACETAMINOPHEN\CODEINE PHOSPHATE
     Dosage: 1-2 FOUR TIMES DAILY
     Dates: start: 20180908
  7. FOSTAIR [Concomitant]
     Active Substance: BECLOMETHASONE\FORMOTEROL
     Dosage: 4 DOSAGE FORM FOR EVERY 1 DAYS PUFFS
     Dates: start: 20180908
  8. MENTHOL. [Concomitant]
     Active Substance: MENTHOL
     Dosage: 10 MILLIGRAM FOR  EVERY 1 DAYS IN HOT WATER INHALE VAPOUR
     Route: 055
     Dates: start: 20180908, end: 20190502
  9. OMEPRAZOLE. [Concomitant]
     Active Substance: OMEPRAZOLE
     Dosage: 2 DOSAGE FORM FOR EVERY 1 DAYS
     Dates: start: 20180908
  10. EZETIMIBE. [Concomitant]
     Active Substance: EZETIMIBE
     Dosage: 1 DOSAGE FORM FOR EVERY 1 DAYS
     Dates: start: 20180908, end: 20190211
  11. CO-AMOXICLAV [Concomitant]
     Active Substance: AMOXICILLIN\CLAVULANATE POTASSIUM
     Dosage: 3 DOSAGE FORM FOR EVERY 1DAYS
     Dates: start: 20180908
  12. CANDESARTAN. [Concomitant]
     Active Substance: CANDESARTAN
     Dosage: 1 DOSAGE FORM FOR EVERY 1 DAYS
     Dates: start: 20180908
  13. AMLODIPINE [Concomitant]
     Active Substance: AMLODIPINE BESYLATE
     Dosage: 1 DOSAGE FORM FOR EVERY 1 DAYS
     Dates: start: 20180908
  14. ALLOPURINOL. [Concomitant]
     Active Substance: ALLOPURINOL
     Dosage: 1 DOSAGE FORM FOR EVERY 1 DAYS IN MORNING
     Dates: start: 20180908

REACTIONS (2)
  - Swelling face [Recovered/Resolved]
  - Swollen tongue [Recovered/Resolved]
